FAERS Safety Report 25516340 (Version 1)
Quarter: 2025Q3

REPORT INFORMATION
  Report Type: Report from Study
  Country: US (occurrence: US)
  Receive Date: 20250704
  Receipt Date: 20250704
  Transmission Date: 20251020
  Serious: No
  Sender: SANDOZ
  Company Number: US-SANDOZ-SDZ2025US046011

PATIENT
  Age: 9 Year
  Sex: Male

DRUGS (2)
  1. OMNITROPE [Suspect]
     Active Substance: SOMATROPIN
     Indication: Growth hormone deficiency
     Dosage: 1 MG, QD (10 MG / 1.5 ML)
     Route: 058
  2. OMNITROPE [Suspect]
     Active Substance: SOMATROPIN
     Indication: Growth hormone deficiency
     Dosage: 1 MG, QD (10 MG / 1.5 ML)
     Route: 058

REACTIONS (7)
  - Crying [Unknown]
  - Headache [Unknown]
  - Incorrect dose administered by device [Unknown]
  - Product use issue [Unknown]
  - Wrong device used [Unknown]
  - Device dispensing error [Unknown]
  - Device issue [Unknown]

NARRATIVE: CASE EVENT DATE: 20250601
